FAERS Safety Report 6087863-1 (Version None)
Quarter: 2009Q1

REPORT INFORMATION
  Report Type: 
  Country: None (occurrence: None)
  Receive Date: 20090223
  Receipt Date: 20090216
  Transmission Date: 20090719
  Serious: Yes (Hospitalization)
  Sender: FDA-Public Use
  Company Number: GB-B.I. PHARMACEUTICALS,INC./RIDGEFIELD-2009-UK-00068UK

PATIENT
  Sex: Male

DRUGS (17)
  1. SPIRIVA [Suspect]
     Indication: CHRONIC OBSTRUCTIVE PULMONARY DISEASE
     Route: 055
     Dates: start: 20081023, end: 20081030
  2. FLUTICASONE PROPIONATE [Concomitant]
     Dosage: 250MG 2 PUFFS BD
     Route: 055
  3. SALBUTAMOL [Concomitant]
     Dosage: 2 PUFFS PRN
     Route: 055
  4. SALMETEROL XINAFOATE [Concomitant]
     Dosage: 2 PUFFS 25MG BD
  5. PREDNISOLONE [Concomitant]
     Dosage: 5MG X 2 DAILY
     Route: 048
  6. ZAPICLONE [Concomitant]
     Dosage: 7.5MG
     Route: 048
  7. METHOTREXATE [Concomitant]
     Dosage: 10MG
     Route: 048
  8. METHOTREXATE [Concomitant]
     Dosage: 25MG
     Route: 048
  9. ACETAMINOPHEN [Concomitant]
     Dosage: 500MG
     Route: 048
  10. DIDRONEL [Concomitant]
  11. FOLIC ACID [Concomitant]
     Dosage: 5MG
  12. LANSOPRAZOLE [Concomitant]
  13. CARBOASHNE [Concomitant]
     Dosage: 375MG
  14. AMYPHYLLIN SR [Concomitant]
     Dosage: 225MG X 3 DAILY
  15. SALBUTAMOL NEBULISER [Concomitant]
     Dosage: QDS NEBULISER
  16. CLARITHROMYCIN [Concomitant]
  17. IPRATROPIUM BROMIDE [Concomitant]
     Dosage: QDS NEBULISER

REACTIONS (2)
  - CIRCULATORY COLLAPSE [None]
  - URINARY RETENTION [None]
